FAERS Safety Report 4832277-2 (Version None)
Quarter: 2005Q4

REPORT INFORMATION
  Report Type: 
  Country: None (occurrence: None)
  Receive Date: 20051119
  Receipt Date: 20051110
  Transmission Date: 20060501
  Serious: Yes (Death, Hospitalization)
  Sender: FDA-Public Use
  Company Number: US-ABBOTT-05P-163-0316914-00

PATIENT
  Age: 21 Year
  Sex: Male

DRUGS (5)
  1. DEPAKOTE [Suspect]
     Indication: SCHIZOAFFECTIVE DISORDER
     Route: 048
  2. DEPAKOTE ER [Suspect]
     Indication: SCHIZOAFFECTIVE DISORDER
     Route: 048
     Dates: start: 20041101
  3. SERTRALINE HYDROCHLORIDE [Concomitant]
     Indication: SCHIZOAFFECTIVE DISORDER
     Route: 048
  4. ZIPRASIDONE HYDROCHLORIDE [Concomitant]
     Indication: SCHIZOAFFECTIVE DISORDER
     Route: 048
  5. ABILIFY [Concomitant]
     Indication: SCHIZOAFFECTIVE DISORDER
     Route: 048

REACTIONS (3)
  - CARDIOMEGALY [None]
  - DRUG LEVEL DECREASED [None]
  - TREATMENT NONCOMPLIANCE [None]
